FAERS Safety Report 7760524-6 (Version None)
Quarter: 2011Q3

REPORT INFORMATION
  Report Type: 
  Country: None (occurrence: None)
  Receive Date: 20110919
  Receipt Date: 20110912
  Transmission Date: 20111222
  Serious: Yes (Death, Other)
  Sender: FDA-Public Use
  Company Number: VE-ELI_LILLY_AND_COMPANY-VE201109003881

PATIENT
  Age: 56 Year
  Sex: Male

DRUGS (1)
  1. HUMALOG MIX 75/25 [Suspect]
     Dosage: UNK
     Dates: start: 20110616

REACTIONS (3)
  - DIABETES MELLITUS INADEQUATE CONTROL [None]
  - RESPIRATORY DISORDER [None]
  - CORONARY ARTERY DISEASE [None]
